FAERS Safety Report 18232681 (Version 1)
Quarter: 2020Q3

REPORT INFORMATION
  Report Type: Spontaneous
  Country: US (occurrence: US)
  Receive Date: 20200904
  Receipt Date: 20200904
  Transmission Date: 20201103
  Serious: No
  Sender: FDA-Public Use
  Company Number: None

PATIENT
  Age: 72 Year
  Sex: Female
  Weight: 88.45 kg

DRUGS (18)
  1. DILAUDID [Concomitant]
     Active Substance: HYDROMORPHONE HYDROCHLORIDE
  2. FENTANYL. [Concomitant]
     Active Substance: FENTANYL
  3. SIMVASTATIN. [Concomitant]
     Active Substance: SIMVASTATIN
  4. PREDNISONE. [Concomitant]
     Active Substance: PREDNISONE
  5. FASLODEX [Concomitant]
     Active Substance: FULVESTRANT
  6. AMLODIPINE BESYLATE. [Concomitant]
     Active Substance: AMLODIPINE BESYLATE
  7. LORAZEPAM. [Concomitant]
     Active Substance: LORAZEPAM
  8. CEPHALEXIN. [Concomitant]
     Active Substance: CEPHALEXIN
  9. XGEVA [Concomitant]
     Active Substance: DENOSUMAB
  10. TYLENOL [Concomitant]
     Active Substance: ACETAMINOPHEN
  11. CAPECITABINE. [Suspect]
     Active Substance: CAPECITABINE
     Indication: BREAST CANCER
     Route: 048
     Dates: start: 20200619, end: 20200904
  12. FOLIC ACID. [Concomitant]
     Active Substance: FOLIC ACID
  13. XARELTO [Concomitant]
     Active Substance: RIVAROXABAN
  14. GABAPENTIN. [Concomitant]
     Active Substance: GABAPENTIN
  15. AVAPRO [Concomitant]
     Active Substance: IRBESARTAN
  16. BUPROPION HCL ER (XL) [Concomitant]
     Active Substance: BUPROPION HYDROCHLORIDE
  17. VITAMIN D3 [Concomitant]
     Active Substance: CHOLECALCIFEROL
  18. CYCLOBENZAPRINE HCL [Concomitant]
     Active Substance: CYCLOBENZAPRINE HYDROCHLORIDE

REACTIONS (1)
  - Disease progression [None]

NARRATIVE: CASE EVENT DATE: 20200904
